FAERS Safety Report 11220896 (Version 1)
Quarter: 2015Q2

REPORT INFORMATION
  Report Type: Report from Study
  Country: CA (occurrence: CA)
  Receive Date: 20150626
  Receipt Date: 20150626
  Transmission Date: 20150821
  Serious: Yes (Death, Other)
  Sender: FDA-Public Use
  Company Number: CA-ROCHE-1598920

PATIENT
  Age: 75 Year
  Sex: Female

DRUGS (1)
  1. HERCEPTIN [Suspect]
     Active Substance: TRASTUZUMAB
     Indication: BREAST CANCER STAGE III
     Dosage: DOSE UNKNOWN
     Route: 065

REACTIONS (4)
  - Deep vein thrombosis [Unknown]
  - Pain [Unknown]
  - Death [Fatal]
  - Diabetic end stage renal disease [Unknown]
